FAERS Safety Report 15357354 (Version 2)
Quarter: 2018Q4

REPORT INFORMATION
  Report Type: Spontaneous
  Country: GB (occurrence: GB)
  Receive Date: 20180906
  Receipt Date: 20181231
  Transmission Date: 20190204
  Serious: Yes (Hospitalization, Congenital Anomaly)
  Sender: FDA-Public Use
  Company Number: GB-TEVA-2018-GB-951835

PATIENT
  Age: 8 Day
  Sex: Male
  Weight: 1.09 kg

DRUGS (4)
  1. LAMOTRIGINE. [Suspect]
     Active Substance: LAMOTRIGINE
     Route: 064
  2. CAFFEINE CITRATE. [Concomitant]
     Active Substance: CAFFEINE CITRATE
     Indication: APNOEA
  3. FOLIC ACID. [Concomitant]
     Active Substance: FOLIC ACID
     Route: 064
  4. LAMOTRIGINE. [Suspect]
     Active Substance: LAMOTRIGINE
     Indication: EPILEPSY
     Dosage: 400 MILLIGRAM DAILY;
     Route: 064

REACTIONS (11)
  - Atrial septal defect [Not Recovered/Not Resolved]
  - Premature baby [Unknown]
  - Tachycardia foetal [Not Recovered/Not Resolved]
  - Apnoea [Unknown]
  - Sepsis [Unknown]
  - Transverse presentation [Unknown]
  - Anaemia [Unknown]
  - Intraventricular haemorrhage neonatal [Not Recovered/Not Resolved]
  - Ventricular septal defect [Not Recovered/Not Resolved]
  - Foetal exposure during pregnancy [Unknown]
  - Patent ductus arteriosus [Not Recovered/Not Resolved]
